FAERS Safety Report 12774417 (Version 1)
Quarter: 2016Q3

REPORT INFORMATION
  Report Type: Spontaneous
  Country: US (occurrence: US)
  Receive Date: 20160923
  Receipt Date: 20160923
  Transmission Date: 20161109
  Serious: No
  Sender: FDA-Public Use
  Company Number: US-BAYER-2016-182486

PATIENT
  Sex: Male

DRUGS (1)
  1. MIDOL EXTENDED RELIEF [Suspect]
     Active Substance: NAPROXEN SODIUM
     Dosage: UNK

REACTIONS (3)
  - Product use issue [None]
  - Therapeutic response unexpected [None]
  - Abdominal pain [None]
